FAERS Safety Report 4514585-8 (Version None)
Quarter: 2004Q4

REPORT INFORMATION
  Report Type: 
  Country: None (occurrence: None)
  Receive Date: 20040927
  Receipt Date: 20040611
  Transmission Date: 20050328
  Serious: No
  Sender: FDA-Public Use
  Company Number: US080004

PATIENT

DRUGS (1)
  1. NEULASTA [Suspect]

REACTIONS (1)
  - HYPOXIA [None]
